FAERS Safety Report 16974428 (Version 1)
Quarter: 2019Q4

REPORT INFORMATION
  Report Type: Spontaneous
  Country: US (occurrence: US)
  Receive Date: 20190913
  Receipt Date: 20190913
  Transmission Date: 20200122
  Serious: No
  Sender: FDA-Public Use
  Company Number: None

PATIENT

DRUGS (1)
  1. XGEVA [Suspect]
     Active Substance: DENOSUMAB
     Indication: HYPERCALCAEMIA
     Route: 058
     Dates: start: 20180726

REACTIONS (4)
  - Urinary tract infection [None]
  - Blood urine present [None]
  - Body temperature increased [None]
  - Therapy cessation [None]

NARRATIVE: CASE EVENT DATE: 20190903
